APPROVED DRUG PRODUCT: EPIRUBICIN HYDROCHLORIDE
Active Ingredient: EPIRUBICIN HYDROCHLORIDE
Strength: 10MG/5ML (2MG/ML)
Dosage Form/Route: INJECTABLE;INJECTION
Application: A065408 | Product #001
Applicant: FRESENIUS KABI USA LLC
Approved: Oct 15, 2007 | RLD: No | RS: No | Type: DISCN